FAERS Safety Report 10557259 (Version 2)
Quarter: 2015Q3

REPORT INFORMATION
  Report Type: Report from Study
  Country: BR (occurrence: BR)
  Receive Date: 20141031
  Receipt Date: 20150701
  Transmission Date: 20151125
  Serious: Yes (Death, Hospitalization, Disabling, Other)
  Sender: FDA-Public Use
  Company Number: PHHY2014BR140061

PATIENT
  Age: 52 Year
  Sex: Female
  Weight: 78 kg

DRUGS (6)
  1. EXJADE [Suspect]
     Active Substance: DEFERASIROX
     Dosage: 2 DF, UNK
     Route: 065
  2. SIMVASTATIN. [Suspect]
     Active Substance: SIMVASTATIN
     Indication: BLOOD CHOLESTEROL ABNORMAL
     Dosage: 1 DF, QHS (AT NIGHT)
     Route: 065
  3. INSULIN [Concomitant]
     Active Substance: INSULIN NOS
     Indication: DIABETES MELLITUS
     Dosage: 7 APPLICATIONS, BID (AT NIGHT AND IN THE MORNING, IN THE BELLY AND ARM)
     Route: 065
  4. PREDNISONE. [Concomitant]
     Active Substance: PREDNISONE
     Indication: BLOOD TEST ABNORMAL
     Dosage: 2 DF (20 MG), QD
     Route: 065
  5. PREDNISONE. [Concomitant]
     Active Substance: PREDNISONE
     Dosage: 2 DF (20 MG), QD
     Route: 065
     Dates: start: 2014
  6. EXJADE [Suspect]
     Active Substance: DEFERASIROX
     Indication: MYELODYSPLASTIC SYNDROME
     Dosage: 3 DF, QD
     Route: 065
     Dates: start: 201310

REACTIONS (10)
  - Anaemia [Recovering/Resolving]
  - Hearing impaired [Not Recovered/Not Resolved]
  - Asthenia [Recovering/Resolving]
  - Syncope [Recovering/Resolving]
  - Serum ferritin increased [Unknown]
  - Platelet count decreased [Unknown]
  - Myelodysplastic syndrome [Fatal]
  - Disease progression [Fatal]
  - Dysstasia [Recovering/Resolving]
  - Tinnitus [Not Recovered/Not Resolved]

NARRATIVE: CASE EVENT DATE: 201409
